FAERS Safety Report 7341667-8 (Version None)
Quarter: 2011Q1

REPORT INFORMATION
  Report Type: 
  Country: None (occurrence: None)
  Receive Date: 20110309
  Receipt Date: 20110301
  Transmission Date: 20110831
  Serious: Yes (Other)
  Sender: FDA-Public Use
  Company Number: US-PFIZER INC-2011013710

PATIENT
  Sex: Female

DRUGS (2)
  1. NAPRELAN [Concomitant]
     Indication: ILL-DEFINED DISORDER
     Dosage: UNK
  2. CLEOCIN [Suspect]
     Indication: TOOTH DISORDER
     Dosage: 300 MG, 4X/DAY
     Route: 048
     Dates: start: 20110118, end: 20110118

REACTIONS (2)
  - PHARYNGEAL OEDEMA [None]
  - DRUG HYPERSENSITIVITY [None]
